FAERS Safety Report 13781931 (Version 1)
Quarter: 2017Q3

REPORT INFORMATION
  Report Type: Spontaneous
  Country: IT (occurrence: IT)
  Receive Date: 20170724
  Receipt Date: 20170724
  Transmission Date: 20171127
  Serious: Yes (Other)
  Sender: FDA-Public Use
  Company Number: IT-PFIZER INC-2017312818

PATIENT
  Age: 25 Year
  Sex: Male

DRUGS (2)
  1. XANAX [Suspect]
     Active Substance: ALPRAZOLAM
     Indication: ANXIETY
     Dosage: 14 DF, TOTAL
     Route: 048
     Dates: start: 20170624, end: 20170624
  2. BRINTELLIX [Suspect]
     Active Substance: VORTIOXETINE HYDROBROMIDE
     Indication: MAJOR DEPRESSION
     Dosage: 20 DF, TOTAL
     Route: 048
     Dates: start: 20170624, end: 20170624

REACTIONS (3)
  - Speech disorder [Unknown]
  - Intentional self-injury [Unknown]
  - Drug abuse [Unknown]

NARRATIVE: CASE EVENT DATE: 20170624
